FAERS Safety Report 7299381-3 (Version None)
Quarter: 2011Q1

REPORT INFORMATION
  Report Type: 
  Country: None (occurrence: None)
  Receive Date: 20110217
  Receipt Date: 20110210
  Transmission Date: 20110831
  Serious: Yes (Hospitalization)
  Sender: FDA-Public Use
  Company Number: B0695268A

PATIENT
  Sex: Female
  Weight: 48 kg

DRUGS (12)
  1. REVOLADE [Suspect]
     Dosage: 25MG PER DAY
     Route: 048
     Dates: start: 20110103, end: 20110130
  2. BONALON [Concomitant]
     Route: 048
  3. PLAVIX [Concomitant]
     Dosage: 75MG PER DAY
     Route: 048
  4. PREDNISOLONE [Suspect]
     Indication: IDIOPATHIC THROMBOCYTOPENIC PURPURA
     Dosage: 5MG PER DAY
     Route: 048
  5. DANAZOL [Suspect]
     Indication: IDIOPATHIC THROMBOCYTOPENIC PURPURA
     Dosage: 100MG PER DAY
     Route: 048
     Dates: end: 20110108
  6. GASTER D [Concomitant]
     Indication: PROPHYLAXIS
     Dosage: 40MG PER DAY
     Route: 048
  7. IMMUNE GLOBULIN NOS [Concomitant]
  8. CORTICOSTEROID [Concomitant]
  9. REVOLADE [Suspect]
     Indication: IDIOPATHIC THROMBOCYTOPENIC PURPURA
     Dosage: 12.5MG PER DAY
     Route: 048
     Dates: start: 20101227, end: 20110102
  10. CRESTOR [Concomitant]
     Dosage: 2.5MG PER DAY
     Route: 048
  11. AZATHIOPRINE [Concomitant]
  12. REVOLADE [Suspect]
     Dosage: 12.5MG PER DAY
     Route: 048
     Dates: start: 20110131

REACTIONS (4)
  - PULMONARY EMBOLISM [None]
  - DEEP VEIN THROMBOSIS [None]
  - OEDEMA PERIPHERAL [None]
  - MYALGIA [None]
